FAERS Safety Report 5204996-X (Version None)
Quarter: 2007Q1

REPORT INFORMATION
  Report Type: 
  Country: None (occurrence: None)
  Receive Date: 20070110
  Receipt Date: 20060926
  Transmission Date: 20070707
  Serious: Yes (Hospitalization)
  Sender: FDA-Public Use
  Company Number: US-BRISTOL-MYERS SQUIBB COMPANY-13522909

PATIENT
  Age: 5 Year
  Sex: Male

DRUGS (3)
  1. ABILIFY [Suspect]
     Dosage: PATIENT TAKING ABILIFY (20MG/24HOURS) 5MG-MORNING, 5MG-AFTERNOON, AND 10MG-NIGHT FOR 3 DAYS.
  2. SEROQUEL [Concomitant]
  3. ZYPREXA [Concomitant]

REACTIONS (3)
  - CONFUSIONAL STATE [None]
  - EXTRAPYRAMIDAL DISORDER [None]
  - STOMATITIS [None]
